FAERS Safety Report 4958948-5 (Version None)
Quarter: 2006Q1

REPORT INFORMATION
  Report Type: 
  Country: None (occurrence: None)
  Receive Date: 20060324
  Receipt Date: 20060313
  Transmission Date: 20060701
  Serious: Yes (Death, Hospitalization)
  Sender: FDA-Public Use
  Company Number: 2006010948

PATIENT
  Age: 83 Year
  Sex: Female
  Weight: 74.8435 kg

DRUGS (8)
  1. BENADRYL [Suspect]
     Indication: PRURITUS
     Dosage: TWO ULTRATABS ONE TIME, ORAL
     Route: 048
     Dates: start: 20060119, end: 20060119
  2. NEOSPORIN [Concomitant]
  3. PEDIALYTE (ELECTROLYTES NOS, GLUCOSE) [Concomitant]
  4. HYDROCORTISONE [Concomitant]
  5. GENERAL NUTRIENTS (GENERAL NUTRIENTS) [Concomitant]
  6. NOXZEMA (CAMPHOR, CLOVE OIL, EUCALYPTUS OIL, MENTHOL, PHENOL) [Concomitant]
  7. ALLANTOIN/COLLOIDAL OATMEAL/GLYCERIN (ALLANTOIN, AVENA, GLYCEROL) [Concomitant]
  8. DRUG (DRUG) [Concomitant]

REACTIONS (11)
  - CARDIAC FAILURE CONGESTIVE [None]
  - DEHYDRATION [None]
  - FEELING ABNORMAL [None]
  - HALLUCINATION [None]
  - HEPATORENAL FAILURE [None]
  - IMPULSE-CONTROL DISORDER [None]
  - MOVEMENT DISORDER [None]
  - PNEUMONIA [None]
  - SENSATION OF HEAVINESS [None]
  - SOMNOLENCE [None]
  - TREMOR [None]
